FAERS Safety Report 10008692 (Version 1)
Quarter: 2014Q1

REPORT INFORMATION
  Report Type: Spontaneous
  Country: US (occurrence: US)
  Receive Date: 20140312
  Receipt Date: 20140312
  Transmission Date: 20141002
  Serious: No
  Sender: FDA-Public Use
  Company Number: US-INCYTE CORPORATION-2012IN000624

PATIENT
  Sex: Male

DRUGS (4)
  1. JAKAFI [Suspect]
     Indication: MYELOFIBROSIS
     Dosage: 15 MG, BID
     Route: 048
  2. FLOMAX [Concomitant]
     Dosage: 0.4 MG, QD
     Route: 048
  3. VITAMIN C [Concomitant]
     Indication: SUPPLEMENTATION THERAPY
     Dosage: UNK, QD
     Route: 048
  4. VITAMIN D [Concomitant]
     Indication: SUPPLEMENTATION THERAPY
     Dosage: UNK, QD
     Route: 048

REACTIONS (1)
  - Eye swelling [Unknown]
